FAERS Safety Report 7761388-7 (Version None)
Quarter: 2011Q3

REPORT INFORMATION
  Report Type: 
  Country: None (occurrence: None)
  Receive Date: 20110920
  Receipt Date: 20110915
  Transmission Date: 20111222
  Serious: No
  Sender: FDA-Public Use
  Company Number: US-PFIZER INC-2011208461

PATIENT
  Sex: Male
  Weight: 99.773 kg

DRUGS (8)
  1. METAMUCIL-2 [Concomitant]
  2. MULTI-VITAMINS [Concomitant]
  3. SUTENT [Suspect]
     Dosage: 50 MG, 1X/DAY
     Route: 048
  4. LEVOTHYROXINE [Concomitant]
     Dosage: 112 UG, UNK
     Route: 048
  5. METFORMIN [Concomitant]
     Dosage: 1000 MG, UNK
     Route: 048
  6. PSYLLIUM [Concomitant]
     Dosage: 28 %, UNK
  7. LISINOPRIL [Concomitant]
     Dosage: 10 MG, UNK
     Route: 048
  8. SIMVASTATIN [Concomitant]
     Dosage: 10 MG, UNK
     Route: 048

REACTIONS (4)
  - FATIGUE [None]
  - FLATULENCE [None]
  - ORAL PAIN [None]
  - MUSCULOSKELETAL CHEST PAIN [None]
